FAERS Safety Report 9236898 (Version 2)
Quarter: 2013Q2

REPORT INFORMATION
  Report Type: Spontaneous
  Country: US (occurrence: US)
  Receive Date: 20130417
  Receipt Date: 20130514
  Transmission Date: 20140414
  Serious: Yes (Other)
  Sender: FDA-Public Use
  Company Number: US-BAYER-2013-048564

PATIENT
  Age: 63 Year
  Sex: Female
  Weight: 112.2 kg

DRUGS (6)
  1. BETASERON [Suspect]
     Indication: RELAPSING-REMITTING MULTIPLE SCLEROSIS
     Dosage: 0.3 MG, QOD
     Route: 058
     Dates: start: 2011
  2. ATIVAN [Concomitant]
     Indication: STRESS
     Dosage: 1 MG, QID
  3. AMBIEN CR [Concomitant]
     Dosage: 12.5 MG, HS
  4. GABAPENTIN [Concomitant]
     Indication: NEUROPATHY PERIPHERAL
     Dosage: 100 MG, UNK
  5. MACROBID [Concomitant]
     Dosage: 100 MG, UNK
  6. TRAMADOL [Concomitant]
     Indication: ANALGESIC THERAPY
     Dosage: UNK UNK, PRN

REACTIONS (2)
  - Neuropathy peripheral [Recovering/Resolving]
  - Urinary tract infection [Recovering/Resolving]
